FAERS Safety Report 9510563 (Version 1)
Quarter: 2013Q3

REPORT INFORMATION
  Report Type: Spontaneous
  Country: US (occurrence: US)
  Receive Date: 20130909
  Receipt Date: 20130909
  Transmission Date: 20140515
  Serious: Yes (Other)
  Sender: FDA-Public Use
  Company Number: CHPA2013US013898

PATIENT
  Age: 80 Year
  Sex: Female

DRUGS (3)
  1. VOLTAREN GEL [Suspect]
     Indication: ARTHRITIS
     Dosage: 2 G, ONCE/SINGLE
     Route: 061
  2. COUMADIN SODIUM [Concomitant]
     Indication: ANTICOAGULANT THERAPY
  3. TYLENOL [Concomitant]

REACTIONS (2)
  - Atrial fibrillation [Recovered/Resolved]
  - Underdose [Unknown]
